FAERS Safety Report 5715741-3 (Version None)
Quarter: 2008Q2

REPORT INFORMATION
  Report Type: 
  Country: None (occurrence: None)
  Receive Date: 20080424
  Receipt Date: 20080418
  Transmission Date: 20081010
  Serious: Yes (Other)
  Sender: FDA-Public Use
  Company Number: US-BRISTOL-MYERS SQUIBB COMPANY-14149215

PATIENT
  Age: 33 Year
  Sex: Female

DRUGS (11)
  1. ORENCIA [Suspect]
     Indication: RHEUMATOID ARTHRITIS
     Dosage: TAKEN FOR 1-1AND1/2 YEARS.LAST DOSE ON 08FEB2008.
     Route: 042
     Dates: start: 20060825, end: 20080208
  2. METHOTREXATE [Concomitant]
  3. ATENOLOL [Concomitant]
  4. DULOXETINE HCL [Concomitant]
  5. FOLIC ACID [Concomitant]
  6. SUMATRIPTAN SUCCINATE [Concomitant]
  7. CYCLOSPORINE [Concomitant]
  8. TRAMADOL HCL [Concomitant]
  9. LEVOTHYROXINE SODIUM [Concomitant]
  10. ESZOPICLONE [Concomitant]
  11. ACETAMINOPHEN AND HYDROCODONE BITARTRATE [Concomitant]

REACTIONS (1)
  - ERYTHEMA NODOSUM [None]
